FAERS Safety Report 5141861-0 (Version None)
Quarter: 2006Q4

REPORT INFORMATION
  Report Type: 
  Country: None (occurrence: None)
  Receive Date: 20061026
  Receipt Date: 20061017
  Transmission Date: 20070319
  Serious: Yes (Death)
  Sender: FDA-Public Use
  Company Number: HQWYE230218OCT06

PATIENT
  Age: 47 Year
  Sex: Male

DRUGS (2)
  1. EFFEXOR [Suspect]
     Dosage: 75 MG 1X PER 1 DAY ORAL; ^ PROBABLY JUST TWO DAYS ^
     Route: 048
  2. MORPHINE [Concomitant]

REACTIONS (6)
  - INADEQUATE ANALGESIA [None]
  - LEG AMPUTATION [None]
  - METASTASES TO LUNG [None]
  - METASTASIS [None]
  - NEOPLASM MALIGNANT [None]
  - WEIGHT DECREASED [None]
